FAERS Safety Report 9396644 (Version 2)
Quarter: 2013Q3

REPORT INFORMATION
  Report Type: Spontaneous
  Country: US (occurrence: US)
  Receive Date: 20130711
  Receipt Date: 20130816
  Transmission Date: 20140515
  Serious: Yes (Hospitalization)
  Sender: FDA-Public Use
  Company Number: US-BIOGENIDEC-2013BI062119

PATIENT
  Sex: Male

DRUGS (8)
  1. TYSABRI [Suspect]
     Indication: MULTIPLE SCLEROSIS
     Route: 042
     Dates: start: 20120410, end: 20130206
  2. PROPRANOLOL XR [Concomitant]
     Indication: PSYCHOTIC DISORDER
     Dates: start: 2010
  3. PROPRANOLOL XR [Concomitant]
     Indication: SUICIDAL IDEATION
     Dates: start: 2010
  4. RISPERIDONE [Concomitant]
     Indication: SUICIDAL IDEATION
     Dates: start: 2010
  5. RISPERIDONE [Concomitant]
     Indication: PSYCHOTIC DISORDER
     Dates: start: 2010
  6. BENZTROPINE [Concomitant]
     Indication: TREMOR
     Dates: start: 2010
  7. FIORICET [Concomitant]
     Indication: HEADACHE
  8. ULTRAM [Concomitant]
     Indication: HEADACHE

REACTIONS (3)
  - Suicidal ideation [Recovered/Resolved]
  - Aggression [Recovered/Resolved]
  - Psychotic disorder [Recovered/Resolved]
